APPROVED DRUG PRODUCT: TRANEXAMIC ACID
Active Ingredient: TRANEXAMIC ACID
Strength: 650MG
Dosage Form/Route: TABLET;ORAL
Application: A219123 | Product #001 | TE Code: AB
Applicant: BIONPHARMA INC
Approved: Aug 19, 2025 | RLD: No | RS: No | Type: RX